FAERS Safety Report 6438449-8 (Version None)
Quarter: 2009Q4

REPORT INFORMATION
  Report Type: 
  Country: None (occurrence: None)
  Receive Date: 20091110
  Receipt Date: 20091027
  Transmission Date: 20100525
  Serious: Yes (Life-Threatening)
  Sender: FDA-Public Use
  Company Number: IDR-00315

PATIENT
  Age: 59 Year
  Sex: Female

DRUGS (2)
  1. PROPRANOLOL [Suspect]
     Dosage: ORAL FORMULATION: CAPSULE CONTR REL
     Route: 048
     Dates: end: 20091027
  2. BENZODIAZEPINE DERIVATIVES /OLD CODE/ (BENZODIAZEPINE DERIVATIVES /OLD [Suspect]
     Dates: start: 20091027, end: 20091027

REACTIONS (1)
  - SUICIDE ATTEMPT [None]
